FAERS Safety Report 7282346-5 (Version None)
Quarter: 2011Q1

REPORT INFORMATION
  Report Type: 
  Country: None (occurrence: None)
  Receive Date: 20110209
  Receipt Date: 20110128
  Transmission Date: 20110831
  Serious: Yes (Hospitalization)
  Sender: FDA-Public Use
  Company Number: US-ELI_LILLY_AND_COMPANY-US201101007243

PATIENT
  Sex: Female

DRUGS (8)
  1. HUMULIN N [Suspect]
     Dosage: 35 U, EACH MORNING
     Dates: start: 20101201
  2. SITAGLIPTIN [Concomitant]
  3. HUMULIN N [Suspect]
     Dosage: 50 U, EACH EVENING
  4. ANALGESIC                          /00735901/ [Concomitant]
     Indication: PAIN
  5. HUMULIN R [Suspect]
     Indication: TYPE 2 DIABETES MELLITUS
     Dosage: UNK, AS NEEDED
     Dates: start: 20070101
  6. AMARYL [Concomitant]
  7. VANCOMYCIN [Concomitant]
  8. HUMULIN N [Suspect]
     Indication: TYPE 2 DIABETES MELLITUS
     Dosage: UNK, UNK

REACTIONS (6)
  - TREMOR [None]
  - PALPITATIONS [None]
  - DYSPNOEA [None]
  - ANXIETY [None]
  - STAPHYLOCOCCAL INFECTION [None]
  - BLOOD GLUCOSE INCREASED [None]
